FAERS Safety Report 7841767-X (Version None)
Quarter: 2011Q4

REPORT INFORMATION
  Report Type: 
  Country: None (occurrence: None)
  Receive Date: 20111024
  Receipt Date: 20111024
  Transmission Date: 20120403
  Serious: No
  Sender: FDA-Public Use
  Company Number: None

PATIENT
  Age: 73 Year
  Sex: Female
  Weight: 68.0396 kg

DRUGS (3)
  1. DIOVAN [Suspect]
     Indication: BLOOD PRESSURE INCREASED
     Dosage: 80MG 1 DAILY ORAL
     Route: 048
     Dates: start: 20071121, end: 20071215
  2. DIOVAN [Suspect]
     Indication: CARDIAC PROCEDURE COMPLICATION
     Dosage: 80MG 1 DAILY ORAL
     Route: 048
     Dates: start: 20071121, end: 20071215
  3. CRESTOR [Suspect]
     Indication: BLOOD CHOLESTEROL INCREASED
     Dosage: 10MG 1 DAILY ORAL
     Route: 048
     Dates: start: 20110801, end: 20110810

REACTIONS (4)
  - DYSPNOEA [None]
  - FORMICATION [None]
  - PRURITUS [None]
  - OXYGEN SATURATION DECREASED [None]
